FAERS Safety Report 4793862-X (Version None)
Quarter: 2005Q4

REPORT INFORMATION
  Report Type: 
  Country: None (occurrence: None)
  Receive Date: 20051007
  Receipt Date: 20051007
  Transmission Date: 20060501
  Serious: Yes (Death)
  Sender: FDA-Public Use
  Company Number: None

PATIENT
  Sex: Male
  Weight: 83.8 kg

DRUGS (1)
  1. CETUXIMAB [Suspect]
     Indication: OESOPHAGEAL ADENOCARCINOMA
     Dosage: SEE IMAGE
     Route: 042
     Dates: start: 20050909, end: 20050909

REACTIONS (6)
  - DISEASE PROGRESSION [None]
  - DRUG TOXICITY [None]
  - DYSPNOEA EXERTIONAL [None]
  - FATIGUE [None]
  - MALAISE [None]
  - WEIGHT INCREASED [None]
